FAERS Safety Report 13010311 (Version 1)
Quarter: 2016Q4

REPORT INFORMATION
  Report Type: Spontaneous
  Country: US (occurrence: US)
  Receive Date: 20161207
  Receipt Date: 20161207
  Transmission Date: 20170207
  Serious: Yes (Death)
  Sender: FDA-Public Use
  Company Number: None

PATIENT
  Age: 58 Year
  Sex: Female
  Weight: 90.7 kg

DRUGS (21)
  1. COMPAZINE [Concomitant]
     Active Substance: PROCHLORPERAZINE MALEATE
  2. OXYCODONE [Concomitant]
     Active Substance: OXYCODONE
  3. FERROUS SULFATE. [Concomitant]
     Active Substance: FERROUS SULFATE
  4. MELOXICAM. [Concomitant]
     Active Substance: MELOXICAM
  5. ROCURONIUM [Concomitant]
     Active Substance: ROCURONIUM BROMIDE
  6. TOPAMAX [Concomitant]
     Active Substance: TOPIRAMATE
  7. SENOKOT [Concomitant]
     Active Substance: SENNOSIDES
  8. VANCOMYCIN [Concomitant]
     Active Substance: VANCOMYCIN
  9. CEFAZOLIN [Concomitant]
     Active Substance: CEFAZOLIN
  10. KETAMINE [Concomitant]
     Active Substance: KETAMINE
  11. OXYCONTIN [Concomitant]
     Active Substance: OXYCODONE HYDROCHLORIDE
  12. ASPIRIN. [Concomitant]
     Active Substance: ASPIRIN
  13. ACETAMINOPHEN. [Concomitant]
     Active Substance: ACETAMINOPHEN
  14. HYDROMORPHONE [Concomitant]
     Active Substance: HYDROMORPHONE
  15. TRANEXAMIC ACID. [Suspect]
     Active Substance: TRANEXAMIC ACID
     Indication: PROCEDURAL HAEMORRHAGE
     Dosage: ?          OTHER FREQUENCY:IVPB OVER 20MINS;?
     Route: 041
     Dates: start: 20161201, end: 20161201
  16. PROPOFOL. [Concomitant]
     Active Substance: PROPOFOL
  17. TRAZODONE [Concomitant]
     Active Substance: TRAZODONE HYDROCHLORIDE
  18. BUPROPION. [Concomitant]
     Active Substance: BUPROPION
  19. PHENYLEPHRINE [Concomitant]
     Active Substance: PHENYLEPHRINE\PHENYLEPHRINE HYDROCHLORIDE
  20. ONDANSETRON [Concomitant]
     Active Substance: ONDANSETRON
  21. DULOXETINE. [Concomitant]
     Active Substance: DULOXETINE

REACTIONS (6)
  - Pulmonary embolism [None]
  - Cardiac arrest [None]
  - Heart rate decreased [None]
  - Bradycardia [None]
  - Pulse absent [None]
  - Congestive cardiomyopathy [None]

NARRATIVE: CASE EVENT DATE: 20161203
